FAERS Safety Report 19594858 (Version 2)
Quarter: 2021Q3

REPORT INFORMATION
  Report Type: Spontaneous
  Country: US (occurrence: US)
  Receive Date: 20210722
  Receipt Date: 20210820
  Transmission Date: 20211014
  Serious: Yes (Hospitalization)
  Sender: FDA-Public Use
  Company Number: US-BOIRON INC.-2021BOR00100

PATIENT
  Age: 59 Year
  Sex: Female
  Weight: 51.7 kg

DRUGS (2)
  1. AVENOC [HOMEOPATHIC] [Suspect]
     Active Substance: HOMEOPATHICS
     Dosage: 5 TABLETS, ONCE
     Route: 048
  2. AVENOC [HOMEOPATHIC] [Suspect]
     Active Substance: HOMEOPATHICS
     Indication: HAEMORRHOIDS
     Dosage: 2 TABLETS, ONCE
     Route: 048

REACTIONS (5)
  - Muscle tightness [Recovered/Resolved]
  - Muscle disorder [Recovering/Resolving]
  - Therapeutic response unexpected [Not Recovered/Not Resolved]
  - Urinary retention [Not Recovered/Not Resolved]
  - Fluid retention [Recovering/Resolving]

NARRATIVE: CASE EVENT DATE: 2020
